FAERS Safety Report 10204121 (Version 1)
Quarter: 2014Q2

REPORT INFORMATION
  Report Type: Spontaneous
  Country: IT (occurrence: IT)
  Receive Date: 20140529
  Receipt Date: 20140529
  Transmission Date: 20141212
  Serious: Yes (Disabling)
  Sender: FDA-Public Use
  Company Number: IT-ASTRAZENECA-2014SE35628

PATIENT
  Age: 25217 Day
  Sex: Male
  Weight: 84 kg

DRUGS (1)
  1. OMEPRAZEN (OMEPRAZOLE) [Suspect]
     Indication: DUODENAL ULCER
     Route: 048
     Dates: start: 20090101

REACTIONS (1)
  - Extrasystoles [Recovering/Resolving]
